FAERS Safety Report 8803268 (Version 1)
Quarter: 2012Q4

REPORT INFORMATION
  Report Type: Report from Study
  Country: PL (occurrence: PL)
  Receive Date: 20120924
  Receipt Date: 20120924
  Transmission Date: 20130627
  Serious: Yes (Death, Life-Threatening, Hospitalization)
  Sender: FDA-Public Use
  Company Number: PL-SANOFI-AVENTIS-2012SA068017

PATIENT
  Age: 66 Year
  Sex: Female
  Weight: 61 kg

DRUGS (8)
  1. DOCETAXEL [Suspect]
     Indication: OVARIAN CANCER
     Dosage: 1 in 3 weeks
     Route: 041
     Dates: start: 20110118, end: 20110118
  2. DOCETAXEL [Suspect]
     Indication: OVARIAN CANCER
     Route: 041
     Dates: start: 20110322, end: 20110322
  3. CARBOPLATIN [Suspect]
     Indication: OVARIAN CANCER
     Dosage: 1 in 3 week
     Route: 041
     Dates: start: 20110118, end: 20110118
  4. CARBOPLATIN [Suspect]
     Indication: OVARIAN CANCER
     Dosage: 1 in 3 week
     Route: 041
     Dates: start: 20110322, end: 20110322
  5. UNSPECIFIED INGREDIENT [Suspect]
     Indication: OVARIAN CANCER
     Dosage: 1 in 1 week
     Route: 041
     Dates: start: 20110118, end: 20110118
  6. UNSPECIFIED INGREDIENT [Suspect]
     Indication: OVARIAN CANCER
     Dosage: 1 in 1 week; cycle 4 week 2 dose
     Route: 041
     Dates: start: 20110329, end: 20110329
  7. PACLITAXEL [Concomitant]
     Indication: OVARIAN CANCER
     Route: 041
  8. CALCIUM LACTATE [Concomitant]
     Route: 041
     Dates: start: 20110401, end: 20110401

REACTIONS (11)
  - Respiratory arrest [Fatal]
  - Febrile neutropenia [Fatal]
  - Chest X-ray abnormal [Not Recovered/Not Resolved]
  - Hyponatraemia [Unknown]
  - Leukopenia [Not Recovered/Not Resolved]
  - Thrombocytopenia [Unknown]
  - Neutropenia [Unknown]
  - Blood creatinine increased [Unknown]
  - Tachycardia [Unknown]
  - Hypotension [Unknown]
  - Multi-organ disorder [Not Recovered/Not Resolved]
